FAERS Safety Report 19133976 (Version 2)
Quarter: 2022Q1

REPORT INFORMATION
  Report Type: Report from Study
  Country: DE (occurrence: DE)
  Receive Date: 20210414
  Receipt Date: 20220316
  Transmission Date: 20220423
  Serious: Yes (Other)
  Sender: FDA-Public Use
  Company Number: DE-VIIV HEALTHCARE LIMITED-DE2021GSK077985

PATIENT
  Sex: Male

DRUGS (1)
  1. ABACAVIR SULFATE\DOLUTEGRAVIR SODIUM\LAMIVUDINE [Suspect]
     Active Substance: ABACAVIR SULFATE\DOLUTEGRAVIR SODIUM\LAMIVUDINE
     Indication: HIV infection
     Dosage: UNK
     Dates: end: 2019

REACTIONS (7)
  - Diabetes mellitus [Unknown]
  - Affective disorder [Unknown]
  - Decreased interest [Unknown]
  - Weight increased [Unknown]
  - Disease risk factor [Unknown]
  - Glycosylated haemoglobin increased [Unknown]
  - Product size issue [Unknown]
